FAERS Safety Report 9702848 (Version 2)
Quarter: 2014Q2

REPORT INFORMATION
  Report Type: Spontaneous
  Country: IT (occurrence: IT)
  Receive Date: 20131121
  Receipt Date: 20140407
  Transmission Date: 20141212
  Serious: Yes (Other)
  Sender: FDA-Public Use
  Company Number: IT-BRISTOL-MYERS SQUIBB COMPANY-19804525

PATIENT
  Age: 58 Year
  Sex: Male

DRUGS (1)
  1. COUMADIN TABS 5 MG [Suspect]
     Indication: PULMONARY EMBOLISM
     Route: 048
     Dates: start: 20131018, end: 20131103

REACTIONS (1)
  - Angioedema [Recovered/Resolved]
